FAERS Safety Report 6326758-2 (Version None)
Quarter: 2009Q3

REPORT INFORMATION
  Report Type: 
  Country: None (occurrence: None)
  Receive Date: 20090825
  Receipt Date: 20090813
  Transmission Date: 20100115
  Serious: Yes (Other)
  Sender: FDA-Public Use
  Company Number: HQWYE194616JUL04

PATIENT
  Sex: Female
  Weight: 78.09 kg

DRUGS (3)
  1. PREMPRO/PREMPHASE [Suspect]
     Indication: HORMONE REPLACEMENT THERAPY
     Dosage: UNSPECIFIED
     Route: 048
     Dates: start: 19930101, end: 20020101
  2. PREMARIN [Suspect]
     Indication: HOT FLUSH
     Dosage: UNSPECIFIED
     Route: 048
     Dates: start: 19900101, end: 19920101
  3. PROVERA [Suspect]
     Indication: HOT FLUSH
     Dosage: UNKNOWN
     Dates: start: 19900101, end: 19920101

REACTIONS (1)
  - BREAST CANCER [None]
